FAERS Safety Report 4287341-6 (Version None)
Quarter: 2004Q1

REPORT INFORMATION
  Report Type: 
  Country: None (occurrence: None)
  Receive Date: 20040209
  Receipt Date: 20021018
  Transmission Date: 20041129
  Serious: No
  Sender: FDA-Public Use
  Company Number: US-GLAXOSMITHKLINE-A0383838A

PATIENT
  Age: 36 Year
  Sex: Female

DRUGS (1)
  1. PAXIL CR [Suspect]
     Indication: DEPRESSION
     Route: 048
     Dates: start: 20020901

REACTIONS (8)
  - BRUXISM [None]
  - DIARRHOEA [None]
  - HYPERTENSION [None]
  - INSOMNIA [None]
  - JAW DISORDER [None]
  - SOMNOLENCE [None]
  - WEIGHT INCREASED [None]
  - YAWNING [None]
